FAERS Safety Report 22658769 (Version 1)
Quarter: 2023Q2

REPORT INFORMATION
  Report Type: Spontaneous
  Country: GB (occurrence: GB)
  Receive Date: 20230630
  Receipt Date: 20230630
  Transmission Date: 20230722
  Serious: Yes (Disabling)
  Sender: FDA-Public Use
  Company Number: GB-MHRA-MED-202306231241261220-DLKMC

PATIENT
  Age: 38 Year
  Sex: Male

DRUGS (1)
  1. SERTRALINE [Suspect]
     Active Substance: SERTRALINE HYDROCHLORIDE
     Indication: Mixed anxiety and depressive disorder
     Dosage: UNK
     Route: 065

REACTIONS (2)
  - Genital hypoaesthesia [Not Recovered/Not Resolved]
  - Sexual dysfunction [Recovered/Resolved with Sequelae]
